FAERS Safety Report 8593098-0 (Version None)
Quarter: 2012Q3

REPORT INFORMATION
  Report Type: 
  Country: None (occurrence: None)
  Receive Date: 20120814
  Receipt Date: 20120808
  Transmission Date: 20120928
  Serious: Yes (Other)
  Sender: FDA-Public Use
  Company Number: CH-JNJFOC-20120603692

PATIENT
  Sex: Male
  Weight: 77 kg

DRUGS (3)
  1. XARELTO [Suspect]
     Indication: THROMBOSIS PROPHYLAXIS
     Route: 048
     Dates: start: 20120407, end: 20120512
  2. PULMICORT [Concomitant]
  3. ACETAMINOPHEN [Concomitant]

REACTIONS (1)
  - THROMBOSIS [None]
